FAERS Safety Report 9871470 (Version 1)
Quarter: 2014Q1

REPORT INFORMATION
  Report Type: Spontaneous
  Country: US (occurrence: US)
  Receive Date: 20140205
  Receipt Date: 20140205
  Transmission Date: 20141002
  Serious: Yes (Death)
  Sender: FDA-Public Use
  Company Number: US-PFIZER INC-2014029754

PATIENT
  Age: 86 Year
  Sex: Female

DRUGS (4)
  1. FLUCONAZOLE [Suspect]
     Indication: FUNGAL INFECTION
  2. VORICONAZOLE [Suspect]
     Indication: ASPERGILLUS INFECTION
     Route: 042
  3. NYSTATIN [Suspect]
     Indication: FUNGAL INFECTION
     Route: 048
  4. METRONIDAZOLE [Concomitant]

REACTIONS (1)
  - Drug ineffective [Fatal]
